FAERS Safety Report 9903195 (Version 3)
Quarter: 2014Q2

REPORT INFORMATION
  Report Type: Spontaneous
  Country: GB (occurrence: GB)
  Receive Date: 20140217
  Receipt Date: 20140624
  Transmission Date: 20141212
  Serious: Yes (Hospitalization)
  Sender: FDA-Public Use
  Company Number: PHFR2014GB001541

PATIENT
  Age: 61 Year
  Sex: Female

DRUGS (1)
  1. CLOZARIL [Suspect]
     Indication: SCHIZOPHRENIA
     Dosage: UNK
     Route: 048
     Dates: start: 20100707

REACTIONS (5)
  - Breast cancer [Unknown]
  - Fall [Unknown]
  - Fracture [Unknown]
  - Haemoglobin decreased [Unknown]
  - Neutrophil count increased [Recovered/Resolved]
